FAERS Safety Report 24291942 (Version 4)
Quarter: 2024Q4

REPORT INFORMATION
  Report Type: Spontaneous
  Country: US (occurrence: US)
  Receive Date: 20240906
  Receipt Date: 20241204
  Transmission Date: 20250114
  Serious: No
  Sender: CALLIDITAS THERAPEUTICS AB
  Company Number: US-Calliditas-2024CAL01403

PATIENT
  Age: 49 Year
  Sex: Female

DRUGS (1)
  1. TARPEYO [Suspect]
     Active Substance: BUDESONIDE
     Indication: IgA nephropathy
     Route: 048
     Dates: start: 20240628

REACTIONS (12)
  - Myalgia [Unknown]
  - Anxiety [Unknown]
  - Irritability [Unknown]
  - Arthralgia [Unknown]
  - Hunger [Unknown]
  - Headache [Not Recovered/Not Resolved]
  - Blood glucose decreased [Unknown]
  - Swelling face [Not Recovered/Not Resolved]
  - Weight increased [Not Recovered/Not Resolved]
  - Increased tendency to bruise [Unknown]
  - Dyspepsia [Unknown]
  - Red blood cell sedimentation rate increased [Unknown]
